FAERS Safety Report 17669670 (Version 1)
Quarter: 2020Q2

REPORT INFORMATION
  Report Type: Spontaneous
  Country: US (occurrence: US)
  Receive Date: 20200415
  Receipt Date: 20200415
  Transmission Date: 20200713
  Serious: Yes (Other)
  Sender: FDA-Public Use
  Company Number: US-MYLANLABS-2020M1037189

PATIENT
  Age: 79 Year
  Sex: Female

DRUGS (3)
  1. LIDOCAINE. [Suspect]
     Active Substance: LIDOCAINE
     Indication: ANAESTHESIA
     Dosage: 5 ML OF A MIXTURE OF 2% ..
     Route: 065
  2. HYLENEX RECOMBINANT [Suspect]
     Active Substance: HYALURONIDASE (HUMAN RECOMBINANT)
     Indication: ANAESTHESIA
     Dosage: 5 ML OF A MIXTURE OF 2% ..
     Route: 065
  3. BUPIVACAINE. [Suspect]
     Active Substance: BUPIVACAINE
     Indication: ANAESTHESIA
     Dosage: 5 ML OF A MIXTURE OF 2%..
     Route: 065

REACTIONS (2)
  - IIIrd nerve paralysis [Recovered/Resolved]
  - Akinesia [Recovered/Resolved]
